FAERS Safety Report 10010791 (Version 2)
Quarter: 2014Q1

REPORT INFORMATION
  Report Type: Spontaneous
  Country: US (occurrence: US)
  Receive Date: 20140314
  Receipt Date: 20140314
  Transmission Date: 20141002
  Serious: No
  Sender: FDA-Public Use
  Company Number: US-DRREDDYS-USA/USA/13/0028940

PATIENT
  Age: 88 Year
  Sex: Female
  Weight: 68.1 kg

DRUGS (3)
  1. CETIRIZINE 10 MG [Suspect]
     Indication: SINUSITIS
     Route: 048
     Dates: start: 20130327, end: 20130403
  2. CETIRIZINE 10 MG [Suspect]
     Indication: HYPERSENSITIVITY
  3. ATENOLOL [Concomitant]
     Indication: PRODUCT USED FOR UNKNOWN INDICATION
     Route: 065

REACTIONS (3)
  - Wrong technique in drug usage process [Unknown]
  - Drug ineffective [Unknown]
  - Product quality issue [Unknown]
